FAERS Safety Report 13398983 (Version 5)
Quarter: 2018Q2

REPORT INFORMATION
  Report Type: Report from Study
  Country: CR (occurrence: CR)
  Receive Date: 20170404
  Receipt Date: 20180511
  Transmission Date: 20180711
  Serious: Yes (Other)
  Sender: FDA-Public Use
  Company Number: PHHY2016CR036671

PATIENT
  Age: 82 Year
  Sex: Male
  Weight: 98 kg

DRUGS (8)
  1. SANDOSTATIN LAR DEPOT [Suspect]
     Active Substance: OCTREOTIDE ACETATE
     Dosage: 30 MG, UNK
     Route: 065
     Dates: start: 201701, end: 201701
  2. IRBESARTAN. [Concomitant]
     Active Substance: IRBESARTAN
     Indication: HYPERTENSION
     Dosage: 1 DF (ONE TABLET), QD
     Route: 048
  3. NOVOLIN N [Concomitant]
     Active Substance: INSULIN HUMAN
     Indication: PRODUCT USED FOR UNKNOWN INDICATION
     Route: 065
  4. INSULIN [Concomitant]
     Active Substance: INSULIN NOS
     Indication: DIABETES MELLITUS
     Dosage: 40 U, UNK
     Route: 065
  5. SANDOSTATIN LAR DEPOT [Suspect]
     Active Substance: OCTREOTIDE ACETATE
     Indication: PANCREATIC NEUROENDOCRINE TUMOUR METASTATIC
     Dosage: 1 DF (ONE INJECTION), QMO
     Route: 030
     Dates: start: 2015
  6. CAPECITABINE. [Suspect]
     Active Substance: CAPECITABINE
     Indication: CHEMOTHERAPY
     Dosage: 4 DF, QD FOR 7 DAYS AND RESTS 7
     Route: 065
  7. NOVOLIN R [Concomitant]
     Active Substance: INSULIN HUMAN
     Indication: PRODUCT USED FOR UNKNOWN INDICATION
     Route: 065
  8. SANDOSTATIN LAR DEPOT [Suspect]
     Active Substance: OCTREOTIDE ACETATE
     Dosage: 1 DF (ONE INJECTION OF INCREASED DOSE), QMO
     Route: 030
     Dates: start: 201604

REACTIONS (27)
  - Gastritis [Unknown]
  - Speech disorder [Unknown]
  - Fall [Unknown]
  - Malignant neoplasm progression [Unknown]
  - Confusional state [Unknown]
  - Motion sickness [Unknown]
  - Malaise [Unknown]
  - Abdominal distension [Unknown]
  - Dizziness [Unknown]
  - Back pain [Not Recovered/Not Resolved]
  - Diarrhoea [Not Recovered/Not Resolved]
  - Formication [Unknown]
  - Abdominal pain upper [Unknown]
  - Metastases to liver [Unknown]
  - Hyperglycaemia [Unknown]
  - Overweight [Unknown]
  - Hypoacusis [Unknown]
  - Pain [Unknown]
  - Chest discomfort [Unknown]
  - Depression [Unknown]
  - Tremor [Unknown]
  - Cardiac failure [Unknown]
  - Head injury [Unknown]
  - Gait disturbance [Unknown]
  - Feeling abnormal [Unknown]
  - Fatigue [Unknown]
  - Dizziness [Recovered/Resolved]
